FAERS Safety Report 5628335-5 (Version None)
Quarter: 2008Q1

REPORT INFORMATION
  Report Type: 
  Country: None (occurrence: None)
  Receive Date: 20080215
  Receipt Date: 20080205
  Transmission Date: 20080703
  Serious: Yes (Death)
  Sender: FDA-Public Use
  Company Number: JP-PFIZER INC-2008006158

PATIENT
  Sex: Male

DRUGS (11)
  1. ZYVOX [Suspect]
     Indication: URINARY TRACT INFECTION
     Route: 048
     Dates: start: 20070822, end: 20070823
  2. PENTCILLIN [Concomitant]
  3. GLUCOSE W/ELECTROLYTES [Concomitant]
  4. HUMULIN 70/30 [Concomitant]
  5. DRUG, UNSPECIFIED [Concomitant]
  6. DRUG, UNSPECIFIED [Concomitant]
  7. FENTANYL [Concomitant]
  8. NORADRENALINE [Concomitant]
  9. ARGININE GLUTAMATE [Concomitant]
  10. AMINOLEBAN [Concomitant]
  11. PROSTARMON F [Concomitant]

REACTIONS (2)
  - CONDITION AGGRAVATED [None]
  - HEPATIC CIRRHOSIS [None]
